FAERS Safety Report 24637736 (Version 1)
Quarter: 2024Q4

REPORT INFORMATION
  Report Type: Spontaneous
  Country: US (occurrence: US)
  Receive Date: 20241119
  Receipt Date: 20241119
  Transmission Date: 20250115
  Serious: No
  Sender: PFIZER
  Company Number: US-PFIZER INC-PV202400148330

PATIENT
  Age: 78 Year
  Sex: Female
  Weight: 55.7 kg

DRUGS (5)
  1. IBRANCE [Suspect]
     Active Substance: PALBOCICLIB
     Indication: Breast cancer metastatic
     Dosage: DAYS 1-21 DAYS EVERY 28 DAYS
     Route: 048
  2. IBRANCE [Suspect]
     Active Substance: PALBOCICLIB
     Dosage: DAYS 1-21
     Route: 048
     Dates: start: 20240603
  3. IBRANCE [Suspect]
     Active Substance: PALBOCICLIB
     Dosage: 100 MG
     Route: 048
     Dates: start: 20240829
  4. IBRANCE [Suspect]
     Active Substance: PALBOCICLIB
     Dosage: TAKE 1 TABLET DAILY ON DAYS 1-21 OF EACH 28 CYCLE
     Route: 048
     Dates: start: 20240926
  5. FASLODEX [Concomitant]
     Active Substance: FULVESTRANT
     Dosage: 500 MG
     Route: 030

REACTIONS (5)
  - Carbohydrate antigen 27.29 increased [Unknown]
  - White blood cell count decreased [Unknown]
  - Mean cell haemoglobin increased [Unknown]
  - Blood glucose decreased [Unknown]
  - Glomerular filtration rate decreased [Unknown]

NARRATIVE: CASE EVENT DATE: 20240926
